FAERS Safety Report 10041025 (Version 1)
Quarter: 2014Q1

REPORT INFORMATION
  Report Type: Spontaneous
  Country: US (occurrence: US)
  Receive Date: 20140327
  Receipt Date: 20140327
  Transmission Date: 20141002
  Serious: No
  Sender: FDA-Public Use
  Company Number: US-BAYER-2014-043061

PATIENT
  Sex: Female

DRUGS (2)
  1. CIPRO [Suspect]
     Indication: SINUSITIS
     Dosage: UNK
  2. LEVAQUIN [Concomitant]
     Indication: SINUSITIS
     Dosage: UNK

REACTIONS (3)
  - Fibromyalgia [Not Recovered/Not Resolved]
  - Fatigue [Not Recovered/Not Resolved]
  - Muscular weakness [Not Recovered/Not Resolved]
